FAERS Safety Report 10201338 (Version 2)
Quarter: 2014Q2

REPORT INFORMATION
  Report Type: Spontaneous
  Country: FR (occurrence: FR)
  Receive Date: 20140528
  Receipt Date: 20140528
  Transmission Date: 20141212
  Serious: Yes (Hospitalization, Disabling)
  Sender: FDA-Public Use
  Company Number: FR-009507513-96096115

PATIENT
  Age: 77 Year
  Sex: Female

DRUGS (5)
  1. LOSARTAN POTASSIUM TABLETS [Suspect]
     Indication: HYPERTENSION
     Dosage: 50 MG, QD
     Route: 065
     Dates: start: 199608, end: 19960908
  2. LITHIUM CARBONATE [Interacting]
     Indication: BIPOLAR I DISORDER
     Dosage: 625 MG, QD
     Route: 065
     Dates: start: 1981, end: 19960908
  3. SEPAMIT [Concomitant]
     Indication: HYPERTENSION
     Dosage: 30 MG, QD
     Dates: start: 1991, end: 199608
  4. TAMOXIFEN CITRATE [Concomitant]
     Indication: BREAST CANCER
     Dosage: 20 MG, UNK
     Dates: start: 1987
  5. DIAZEPAM [Concomitant]
     Indication: BIPOLAR I DISORDER

REACTIONS (5)
  - Drug interaction [Recovered/Resolved]
  - Confusional state [Recovered/Resolved]
  - Dysarthria [Recovered/Resolved]
  - Drug level increased [Recovered/Resolved]
  - Ataxia [Recovered/Resolved]
